FAERS Safety Report 6901498-7 (Version None)
Quarter: 2010Q3

REPORT INFORMATION
  Report Type: 
  Country: None (occurrence: None)
  Receive Date: 20100803
  Receipt Date: 20080201
  Transmission Date: 20110219
  Serious: Yes (Other)
  Sender: FDA-Public Use
  Company Number: US-PFIZER INC-2008012033

PATIENT
  Sex: Female
  Weight: 43.1 kg

DRUGS (10)
  1. LYRICA [Suspect]
     Indication: FIBROMYALGIA
     Dates: start: 20071201, end: 20080101
  2. PAXIL [Concomitant]
  3. CYMBALTA [Concomitant]
  4. SENNA [Concomitant]
  5. MAGNESIUM [Concomitant]
  6. XENICAL [Concomitant]
  7. HYDROXYZINE HYDROCHLORIDE [Concomitant]
  8. NEXIUM [Concomitant]
  9. MULTIPLE VITAMINS [Concomitant]
  10. PERCOCET [Concomitant]

REACTIONS (5)
  - FATIGUE [None]
  - INCREASED APPETITE [None]
  - OEDEMA PERIPHERAL [None]
  - SWELLING [None]
  - WEIGHT INCREASED [None]
